FAERS Safety Report 7438981-4 (Version None)
Quarter: 2011Q2

REPORT INFORMATION
  Report Type: 
  Country: None (occurrence: None)
  Receive Date: 20110427
  Receipt Date: 20110413
  Transmission Date: 20111010
  Serious: Yes (Other)
  Sender: FDA-Public Use
  Company Number: US-PAR PHARMACEUTICAL, INC-2011SCPR002858

PATIENT
  Age: 66 Year
  Sex: Female

DRUGS (6)
  1. EPINEPHRINE [Suspect]
     Indication: PLASTIC SURGERY
     Dosage: 0.20 MG, UNK
     Route: 065
  2. ATROPINE [Suspect]
     Indication: PRODUCT USED FOR UNKNOWN INDICATION
     Dosage: UNK, UNKNOWN
     Route: 065
  3. PROPRANOLOL HCL [Suspect]
     Indication: HYPERTENSION
     Dosage: 10 MG, BID
     Route: 065
  4. LIDOCAINE [Suspect]
     Indication: PLASTIC SURGERY
     Dosage: 40 ML 0.5% WITH 1: 200,000 EPINEPHRINE
     Route: 065
  5. DIAZEPAM [Concomitant]
     Indication: PAIN PROPHYLAXIS
     Dosage: TITRATED TO EFFECT
     Route: 042
  6. DYAZIDE [Suspect]
     Indication: HYPERTENSION
     Dosage: UNK, UNKNOWN
     Route: 065

REACTIONS (2)
  - HYPERTENSIVE CRISIS [None]
  - DRUG INTERACTION [None]
